FAERS Safety Report 10932314 (Version 1)
Quarter: 2015Q1

REPORT INFORMATION
  Report Type: Spontaneous
  Country: None (occurrence: None)
  Receive Date: 20150319
  Receipt Date: 20150319
  Transmission Date: 20150721
  Serious: Yes (Other)
  Sender: FDA-Public Use
  Company Number: None

PATIENT
  Age: 25 Year
  Sex: Female
  Weight: 72.58 kg

DRUGS (4)
  1. BACTRIM DS [Concomitant]
     Active Substance: SULFAMETHOXAZOLE\TRIMETHOPRIM
  2. EMERGEN-C [Concomitant]
     Active Substance: VITAMINS
  3. PARAGARD T 380A [Suspect]
     Active Substance: COPPER
     Dates: start: 20141001
  4. AZO [Concomitant]
     Active Substance: PHENAZOPYRIDINE HYDROCHLORIDE

REACTIONS (2)
  - Urinary tract infection [None]
  - Discomfort [None]

NARRATIVE: CASE EVENT DATE: 20141002
